FAERS Safety Report 7662074-4 (Version None)
Quarter: 2011Q3

REPORT INFORMATION
  Report Type: 
  Country: None (occurrence: None)
  Receive Date: 20110805
  Receipt Date: 20101209
  Transmission Date: 20111222
  Serious: No
  Sender: FDA-Public Use
  Company Number: US-ABBOTT-10P-163-0690467-00

PATIENT
  Sex: Male
  Weight: 130.75 kg

DRUGS (3)
  1. ASPIRIN [Concomitant]
     Indication: PRODUCT USED FOR UNKNOWN INDICATION
  2. ULORIC [Concomitant]
     Indication: PRODUCT USED FOR UNKNOWN INDICATION
  3. NIASPAN [Suspect]
     Indication: HIGH DENSITY LIPOPROTEIN DECREASED
     Dosage: IN THE MORNING
     Dates: start: 20101207

REACTIONS (4)
  - FLUSHING [None]
  - ERYTHEMA [None]
  - FEELING HOT [None]
  - PRURITUS [None]
